FAERS Safety Report 9599290 (Version 1)
Quarter: 2013Q4

REPORT INFORMATION
  Report Type: Spontaneous
  Country: US (occurrence: US)
  Receive Date: 20131004
  Receipt Date: 20131004
  Transmission Date: 20140711
  Serious: No
  Sender: FDA-Public Use
  Company Number: US-AMGEN-USASP2013028426

PATIENT
  Age: 58 Year
  Sex: Female
  Weight: 129.2 kg

DRUGS (11)
  1. ENBREL [Suspect]
     Indication: PRODUCT USED FOR UNKNOWN INDICATION
     Dosage: 50 MG, QWK
     Route: 058
  2. SULFASALAZINE [Concomitant]
     Dosage: 500 MG EC
  3. ALEVE [Concomitant]
     Dosage: 220 MG, UNK
  4. ADVAIR [Concomitant]
     Dosage: UNK
  5. ACCOLATE [Concomitant]
     Dosage: 20 MG, UNK
  6. CELEBREX [Concomitant]
     Dosage: 100 MG, UNK
  7. SYNTHROID [Concomitant]
     Dosage: 125 MCG UNK
  8. MULTIVITAMINS, PLAIN [Concomitant]
     Dosage: UNK
  9. CALCIUM [Concomitant]
     Dosage: 500 UNK, UNK
  10. NASAL DECONGESTANT                 /00005601/ [Concomitant]
     Dosage: TAB 12 HR
  11. ASA [Concomitant]
     Dosage: 81 MG, EC

REACTIONS (2)
  - Injection site reaction [Unknown]
  - Injection site erythema [Unknown]
